FAERS Safety Report 9500235 (Version 1)
Quarter: 2013Q3

REPORT INFORMATION
  Report Type: Spontaneous
  Country: US (occurrence: None)
  Receive Date: 20130904
  Receipt Date: 20130904
  Transmission Date: 20140515
  Serious: No
  Sender: FDA-Public Use
  Company Number: None

PATIENT
  Age: 61 Year
  Sex: 0

DRUGS (4)
  1. INLYTA [Suspect]
     Indication: RENAL CANCER
     Dosage: 1 TABLET
     Route: 048
     Dates: start: 201308
  2. STOOL SOFTNER [Concomitant]
  3. MORPHINE SULFATE [Concomitant]
  4. MULTIVITAMIN [Concomitant]

REACTIONS (2)
  - Nausea [None]
  - Weight decreased [None]
